FAERS Safety Report 7363935-6 (Version None)
Quarter: 2011Q1

REPORT INFORMATION
  Report Type: 
  Country: None (occurrence: None)
  Receive Date: 20110321
  Receipt Date: 20110315
  Transmission Date: 20110831
  Serious: Yes (Hospitalization)
  Sender: FDA-Public Use
  Company Number: FR-ROCHE-765673

PATIENT
  Sex: Female

DRUGS (5)
  1. ADIAZINE [Suspect]
     Indication: CEREBRAL TOXOPLASMOSIS
     Route: 048
     Dates: start: 20110212, end: 20110224
  2. MALOCIDE [Concomitant]
     Indication: CEREBRAL TOXOPLASMOSIS
     Route: 048
     Dates: start: 20110212
  3. ROVALCYTE [Suspect]
     Route: 048
     Dates: start: 20110222, end: 20110224
  4. ROVALCYTE [Suspect]
     Route: 048
  5. KEPPRA [Concomitant]
     Dosage: DRUG REPORTED: KEPPRA 100 MG/ML
     Route: 048
     Dates: start: 20110215

REACTIONS (4)
  - PALATAL OEDEMA [None]
  - RASH ERYTHEMATOUS [None]
  - PRURITUS [None]
  - ANGIOEDEMA [None]
